FAERS Safety Report 15431574 (Version 2)
Quarter: 2018Q4

REPORT INFORMATION
  Report Type: Spontaneous
  Country: DE (occurrence: DE)
  Receive Date: 20180926
  Receipt Date: 20181001
  Transmission Date: 20190204
  Serious: Yes (Hospitalization)
  Sender: FDA-Public Use
  Company Number: DE-ALLERGAN-1647139

PATIENT
  Age: 20 Year
  Sex: Male
  Weight: 58 kg

DRUGS (5)
  1. PREDNISONE. [Concomitant]
     Active Substance: PREDNISONE
     Dosage: HIGH DOSE
  2. PREDNISONE. [Concomitant]
     Active Substance: PREDNISONE
     Indication: COLITIS ULCERATIVE
     Dosage: 60 MG, DAILY
     Route: 048
  3. MESALAZINE UNK [Suspect]
     Active Substance: MESALAMINE
     Indication: COLITIS ULCERATIVE
     Dosage: 3 G, DAILY
     Route: 048
  4. MESALAZINE UNK [Suspect]
     Active Substance: MESALAMINE
     Dosage: 1 G, QD
     Route: 061
  5. MESALAZINE UNK [Suspect]
     Active Substance: MESALAMINE
     Dosage: 2 G, QD
     Route: 048

REACTIONS (2)
  - Pulmonary toxicity [Recovered/Resolved]
  - Organising pneumonia [Recovered/Resolved]
